FAERS Safety Report 6600223-7 (Version None)
Quarter: 2010Q1

REPORT INFORMATION
  Report Type: 
  Country: None (occurrence: None)
  Receive Date: 20100224
  Receipt Date: 20100217
  Transmission Date: 20100710
  Serious: Yes (Hospitalization, Other)
  Sender: FDA-Public Use
  Company Number: US-BAXTER-2010BH003316

PATIENT
  Sex: Female

DRUGS (2)
  1. HEPARIN SODIUM INJECTION [Suspect]
     Indication: AORTIC BYPASS
     Route: 058
     Dates: start: 20080201
  2. HEPARIN SODIUM INJECTION [Suspect]
     Route: 058
     Dates: start: 20080201

REACTIONS (9)
  - DISSEMINATED INTRAVASCULAR COAGULATION [None]
  - HYPOTENSION [None]
  - LIVER FUNCTION TEST ABNORMAL [None]
  - MENTAL STATUS CHANGES [None]
  - PLATELET COUNT DECREASED [None]
  - RESPIRATORY FAILURE [None]
  - TACHYCARDIA [None]
  - TACHYPNOEA [None]
  - THROMBOCYTOPENIA [None]
